FAERS Safety Report 8831378 (Version 2)
Quarter: 2012Q4

REPORT INFORMATION
  Report Type: 
  Country: ES (occurrence: ES)
  Receive Date: 20121009
  Receipt Date: 20121011
  Transmission Date: 20130627
  Serious: Yes (Other)
  Sender: FDA-Public Use
  Company Number: ES-UCBSA-068200

PATIENT
  Sex: Female

DRUGS (3)
  1. VIMPAT [Suspect]
     Indication: EPILEPSY
     Dosage: TOTAL DAILY DOSE: 400MG
  2. LUMINAL [Concomitant]
     Indication: EPILEPSY
     Dosage: TOTAL DAILY DOSE: 100 MG
  3. NOIAFREN [Concomitant]
     Dosage: TOTAL DAILY DOSE: 15 MG

REACTIONS (2)
  - Skin infection [Unknown]
  - Pruritus [Unknown]
